FAERS Safety Report 8354866 (Version 39)
Quarter: 2017Q1

REPORT INFORMATION
  Report Type: Spontaneous
  Country: CA (occurrence: CA)
  Receive Date: 20120125
  Receipt Date: 20170329
  Transmission Date: 20170429
  Serious: Yes (Hospitalization, Other)
  Sender: FDA-Public Use
  Company Number: CA-ROCHE-GNE310523

PATIENT
  Age: 47 Year
  Sex: Female

DRUGS (25)
  1. XOLAIR [Suspect]
     Active Substance: OMALIZUMAB
     Dosage: UNK
     Route: 058
     Dates: start: 20150115
  2. XOLAIR [Suspect]
     Active Substance: OMALIZUMAB
     Dosage: 225 MG, BIW
     Route: 058
  3. BIAXIN [Concomitant]
     Active Substance: CLARITHROMYCIN
     Route: 065
  4. XOLAIR [Suspect]
     Active Substance: OMALIZUMAB
     Dosage: 300 MG, UNK
     Route: 058
  5. XOLAIR [Suspect]
     Active Substance: OMALIZUMAB
     Dosage: UNK
     Route: 058
     Dates: start: 20170208
  6. XOLAIR [Suspect]
     Active Substance: OMALIZUMAB
     Dosage: 300 MG, EVERY 4 WEEKS
     Route: 058
     Dates: start: 20100930
  7. XOLAIR [Suspect]
     Active Substance: OMALIZUMAB
     Dosage: UNK
     Route: 058
     Dates: start: 20140528
  8. XOLAIR [Suspect]
     Active Substance: OMALIZUMAB
     Dosage: UNK
     Route: 058
     Dates: start: 20141120
  9. XOLAIR [Suspect]
     Active Substance: OMALIZUMAB
     Dosage: UNK
     Route: 058
     Dates: start: 20160405
  10. XOLAIR [Suspect]
     Active Substance: OMALIZUMAB
     Dosage: UNK
     Route: 058
     Dates: start: 20170308
  11. HIZENTRA [Concomitant]
     Active Substance: HUMAN IMMUNOGLOBULIN G
     Route: 058
     Dates: start: 201501
  12. XOLAIR [Suspect]
     Active Substance: OMALIZUMAB
     Dosage: UNK
     Route: 058
     Dates: start: 20130328
  13. XOLAIR [Suspect]
     Active Substance: OMALIZUMAB
     Dosage: UNK
     Route: 058
     Dates: start: 20160602
  14. XOLAIR [Suspect]
     Active Substance: OMALIZUMAB
     Dosage: UNK
     Route: 058
     Dates: start: 20130718
  15. XOLAIR [Suspect]
     Active Substance: OMALIZUMAB
     Dosage: UNK
     Route: 058
     Dates: start: 20130904
  16. XOLAIR [Suspect]
     Active Substance: OMALIZUMAB
     Dosage: UNK
     Route: 058
     Dates: start: 20141023
  17. XOLAIR [Suspect]
     Active Substance: OMALIZUMAB
     Dosage: UNK
     Route: 058
     Dates: start: 20150211
  18. XOLAIR [Suspect]
     Active Substance: OMALIZUMAB
     Dosage: UNK
     Route: 058
     Dates: start: 20151021
  19. XOLAIR [Suspect]
     Active Substance: OMALIZUMAB
     Dosage: UNK
     Route: 058
     Dates: start: 20150702
  20. XOLAIR [Suspect]
     Active Substance: OMALIZUMAB
     Indication: ASTHMA
     Dosage: 225 MG, BIW
     Route: 058
     Dates: start: 20100513
  21. XOLAIR [Suspect]
     Active Substance: OMALIZUMAB
     Dosage: UNK
     Route: 058
     Dates: start: 20140507
  22. XOLAIR [Suspect]
     Active Substance: OMALIZUMAB
     Dosage: UNK
     Route: 058
     Dates: start: 20151230
  23. XOLAIR [Suspect]
     Active Substance: OMALIZUMAB
     Dosage: UNK
     Route: 058
     Dates: start: 20160713
  24. XOLAIR [Suspect]
     Active Substance: OMALIZUMAB
     Dosage: UNK
     Route: 058
     Dates: start: 20161116
  25. IMMUNOGLOBULIN HUMAN NORMAL [Suspect]
     Active Substance: HUMAN IMMUNOGLOBULIN G
     Indication: PRODUCT USED FOR UNKNOWN INDICATION
     Route: 042

REACTIONS (43)
  - Oedema [Unknown]
  - Paraesthesia [Unknown]
  - Ligament rupture [Unknown]
  - Lung infection [Unknown]
  - Headache [Unknown]
  - Oral herpes [Unknown]
  - Nasopharyngitis [Unknown]
  - Ear pain [Unknown]
  - Exostosis [Unknown]
  - Asthma [Unknown]
  - Infection [Recovering/Resolving]
  - Tibia fracture [Unknown]
  - Lower limb fracture [Unknown]
  - Angioedema [Unknown]
  - Blood pressure decreased [Unknown]
  - Obstructive airways disorder [Unknown]
  - Malaise [Not Recovered/Not Resolved]
  - Fibula fracture [Unknown]
  - Tooth disorder [Unknown]
  - Ankle fracture [Unknown]
  - Respiratory rate increased [Unknown]
  - Eye swelling [Unknown]
  - Anaemia [Unknown]
  - Rib fracture [Unknown]
  - Ligament sprain [Unknown]
  - Tooth abscess [Unknown]
  - Body temperature decreased [Unknown]
  - Anaphylactic reaction [Unknown]
  - Anaphylactic shock [Unknown]
  - Hypersensitivity [Recovering/Resolving]
  - Escherichia test positive [Unknown]
  - Blood pressure increased [Unknown]
  - Chest discomfort [Unknown]
  - Sinusitis [Unknown]
  - Impaired driving ability [Unknown]
  - Fall [Unknown]
  - Seasonal allergy [Unknown]
  - Influenza [Unknown]
  - Hereditary angioedema [Unknown]
  - Injury [Unknown]
  - Eye contusion [Unknown]
  - Nasal congestion [Unknown]
  - Drug ineffective [Unknown]

NARRATIVE: CASE EVENT DATE: 20100930
